FAERS Safety Report 16864654 (Version 1)
Quarter: 2019Q3

REPORT INFORMATION
  Report Type: Spontaneous
  Country: US (occurrence: US)
  Receive Date: 20190928
  Receipt Date: 20190928
  Transmission Date: 20191005
  Serious: No
  Sender: FDA-Public Use
  Company Number: PHEH2019US039743

PATIENT
  Sex: Female
  Weight: 89.81 kg

DRUGS (1)
  1. MESALAMINE. [Suspect]
     Active Substance: MESALAMINE
     Indication: ANAL FISSURE
     Dosage: 1000 MG, AT NIGHT ONE PER RECTUM
     Route: 065
     Dates: start: 20190723

REACTIONS (2)
  - Product packaging quantity issue [Unknown]
  - Memory impairment [Unknown]
